FAERS Safety Report 6085663-X (Version None)
Quarter: 2009Q1

REPORT INFORMATION
  Report Type: 
  Country: None (occurrence: None)
  Receive Date: 20090217
  Receipt Date: 20080107
  Transmission Date: 20090719
  Serious: Yes (Other)
  Sender: FDA-Public Use
  Company Number: MC200700731

PATIENT
  Age: 49 Year
  Sex: Male
  Weight: 111.1 kg

DRUGS (5)
  1. ANGIOMAX [Suspect]
     Indication: PERCUTANEOUS CORONARY INTERVENTION
     Dosage: 0.75 MG/KG, BOLUS, IV BOLUS; 1.75 MG/KG, HR, INTRAVENOUS
     Route: 040
     Dates: start: 20071210, end: 20071210
  2. ANGIOMAX [Suspect]
     Indication: PERCUTANEOUS CORONARY INTERVENTION
     Dosage: 0.75 MG/KG, BOLUS, IV BOLUS; 1.75 MG/KG, HR, INTRAVENOUS
     Route: 040
     Dates: start: 20071210, end: 20071210
  3. . [Concomitant]
  4. ASPIRIN [Concomitant]
  5. CLOPIDOGREL [Concomitant]

REACTIONS (2)
  - CHEST PAIN [None]
  - CORONARY ARTERY THROMBOSIS [None]
